FAERS Safety Report 7563402-0 (Version None)
Quarter: 2011Q2

REPORT INFORMATION
  Report Type: 
  Country: None (occurrence: None)
  Receive Date: 20110621
  Receipt Date: 20110621
  Transmission Date: 20111010
  Serious: Yes (Other)
  Sender: FDA-Public Use
  Company Number: None

PATIENT
  Age: 53 Year
  Sex: Female
  Weight: 65.7716 kg

DRUGS (1)
  1. CHANTIX [Suspect]
     Indication: SMOKING CESSATION THERAPY
     Dosage: 1 TWICE A DAY    PO (ONE AND OFF FOR 1 YR)
     Route: 048
     Dates: start: 20091231, end: 20110605

REACTIONS (5)
  - ARTHRALGIA [None]
  - MYALGIA [None]
  - HEADACHE [None]
  - NECK PAIN [None]
  - NO THERAPEUTIC RESPONSE [None]
